FAERS Safety Report 9217577 (Version 1)
Quarter: 2013Q2

REPORT INFORMATION
  Report Type: Spontaneous
  Country: CH (occurrence: CH)
  Receive Date: 20130408
  Receipt Date: 20130408
  Transmission Date: 20140414
  Serious: Yes (Hospitalization)
  Sender: FDA-Public Use
  Company Number: CH-ROCHE-1210713

PATIENT
  Age: 43 Year
  Sex: Male

DRUGS (8)
  1. PEGASYS [Suspect]
     Indication: HEPATITIS CHOLESTATIC
     Route: 058
     Dates: start: 20121217, end: 20130124
  2. COPEGUS [Suspect]
     Indication: HEPATITIS CHOLESTATIC
     Route: 048
     Dates: start: 20121217, end: 20130124
  3. CELLCEPT [Suspect]
     Indication: LIVER TRANSPLANT
     Route: 048
     Dates: start: 20120625, end: 20130115
  4. VALCYTE [Suspect]
     Indication: CYTOMEGALOVIRUS INFECTION
     Route: 048
     Dates: start: 20121123, end: 20130121
  5. INCIVO [Suspect]
     Indication: HEPATITIS C
     Route: 048
     Dates: start: 20121217, end: 20130124
  6. PROGRAF [Suspect]
     Indication: IMMUNOSUPPRESSION
     Route: 048
     Dates: start: 201206
  7. PROGRAF [Suspect]
     Route: 048
     Dates: start: 20130128
  8. WELLVONE [Suspect]
     Indication: PNEUMOCYSTIS JIROVECII INFECTION
     Route: 048
     Dates: start: 201212, end: 20130121

REACTIONS (3)
  - Pancytopenia [Recovering/Resolving]
  - Pneumocystis jirovecii infection [Recovered/Resolved]
  - Hepatitis cholestatic [Unknown]
